FAERS Safety Report 6283849-2 (Version None)
Quarter: 2009Q3

REPORT INFORMATION
  Report Type: 
  Country: None (occurrence: None)
  Receive Date: 20090723
  Receipt Date: 20090723
  Transmission Date: 20100115
  Serious: Yes (Hospitalization)
  Sender: FDA-Public Use
  Company Number: None

PATIENT
  Sex: Male
  Weight: 51.81 kg

DRUGS (2)
  1. CISPLATIN [Suspect]
     Dosage: 139 MG
  2. ETOPOSIDE [Suspect]
     Dosage: 522 MG

REACTIONS (8)
  - DEHYDRATION [None]
  - DYSPHAGIA [None]
  - NAUSEA [None]
  - OESOPHAGITIS [None]
  - PLATELET COUNT ABNORMAL [None]
  - PNEUMONIA [None]
  - VOMITING [None]
  - WHEELCHAIR USER [None]
